FAERS Safety Report 7967569-1 (Version None)
Quarter: 2011Q4

REPORT INFORMATION
  Report Type: 
  Country: None (occurrence: None)
  Receive Date: 20111209
  Receipt Date: 20111129
  Transmission Date: 20120403
  Serious: Yes (Life-Threatening, Hospitalization)
  Sender: FDA-Public Use
  Company Number: FR-JNJFOC-20090805067

PATIENT
  Age: 51 Year
  Sex: Male

DRUGS (3)
  1. REMICADE [Suspect]
     Indication: PSORIASIS
     Route: 042
     Dates: start: 20080401
  2. REMICADE [Suspect]
     Route: 042
     Dates: start: 20080101
  3. VERAPAMIL [Concomitant]

REACTIONS (4)
  - RENAL FAILURE [None]
  - ACUTE RESPIRATORY FAILURE [None]
  - LUNG DISORDER [None]
  - LEGIONELLA INFECTION [None]
